FAERS Safety Report 20669550 (Version 1)
Quarter: 2022Q2

REPORT INFORMATION
  Report Type: Spontaneous
  Country: US (occurrence: US)
  Receive Date: 20220404
  Receipt Date: 20220404
  Transmission Date: 20220721
  Serious: Yes (Other)
  Sender: FDA-Public Use
  Company Number: US-GILEAD-2022-0576041

PATIENT
  Age: 68 Year
  Sex: Male
  Weight: 78.8 kg

DRUGS (1)
  1. YESCARTA [Suspect]
     Active Substance: AXICABTAGENE CILOLEUCEL
     Indication: Follicular lymphoma
     Dosage: UNK
     Route: 042
     Dates: start: 20220210, end: 20220210

REACTIONS (1)
  - Cytokine release syndrome [Unknown]

NARRATIVE: CASE EVENT DATE: 20220215
